FAERS Safety Report 13622509 (Version 1)
Quarter: 2017Q2

REPORT INFORMATION
  Report Type: Spontaneous
  Country: US (occurrence: US)
  Receive Date: 20170607
  Receipt Date: 20170607
  Transmission Date: 20170830
  Serious: Yes (Hospitalization)
  Sender: FDA-Public Use
  Company Number: US-ROCHE-1820009

PATIENT
  Sex: Female

DRUGS (5)
  1. ZANTAC [Suspect]
     Active Substance: RANITIDINE HYDROCHLORIDE
     Indication: PRODUCT USED FOR UNKNOWN INDICATION
     Route: 065
  2. NUVIGIL [Interacting]
     Active Substance: ARMODAFINIL
     Indication: NARCOLEPSY
     Route: 065
  3. IBRANCE [Interacting]
     Active Substance: PALBOCICLIB
     Indication: BREAST CANCER
     Route: 065
  4. PROVIGIL [Interacting]
     Active Substance: MODAFINIL
     Indication: NARCOLEPSY
     Route: 065
  5. XELODA [Suspect]
     Active Substance: CAPECITABINE
     Indication: BREAST CANCER
     Route: 065

REACTIONS (7)
  - Drug interaction [Unknown]
  - Malaise [Unknown]
  - Drug ineffective [Unknown]
  - Pneumonia [Unknown]
  - Tumour marker increased [Unknown]
  - Dehydration [Unknown]
  - Mycobacterium avium complex infection [Unknown]
